FAERS Safety Report 4633801-5 (Version None)
Quarter: 2005Q2

REPORT INFORMATION
  Report Type: 
  Country: None (occurrence: None)
  Receive Date: 20050325
  Receipt Date: 20041210
  Transmission Date: 20051028
  Serious: No
  Sender: FDA-Public Use
  Company Number: USA041285882

PATIENT
  Age: 71 Year
  Sex: Female
  Weight: 63 kg

DRUGS (8)
  1. FORTEO [Suspect]
     Indication: OSTEOPOROSIS
     Dosage: 20 UG/1 DAY
     Dates: start: 20041017
  2. MESALAMINE [Concomitant]
  3. VERELAN (VERAPAMIL HYDROCHLORIDE) [Concomitant]
  4. RESTORIL [Concomitant]
  5. XANAX (ALPRAZOLAM DUM) [Concomitant]
  6. SYNTHROID [Concomitant]
  7. VITAMIN D [Concomitant]
  8. CALCIUM GLUCONATE [Concomitant]

REACTIONS (3)
  - CATARACT OPERATION [None]
  - DIZZINESS [None]
  - HEADACHE [None]
